FAERS Safety Report 9672299 (Version 2)
Quarter: 2014Q3

REPORT INFORMATION
  Report Type: Spontaneous
  Country: US (occurrence: US)
  Receive Date: 20131106
  Receipt Date: 20140822
  Transmission Date: 20150326
  Serious: Yes (Death, Hospitalization, Disabling, Other)
  Sender: FDA-Public Use
  Company Number: US-009507513-1311USA001666

PATIENT
  Sex: Male
  Weight: 63.49 kg

DRUGS (1)
  1. JANUMET [Suspect]
     Active Substance: METFORMIN HYDROCHLORIDE\SITAGLIPTIN PHOSPHATE
     Indication: TYPE 2 DIABETES MELLITUS
     Dosage: 50-500 MG
     Route: 048
     Dates: end: 20111202

REACTIONS (4)
  - Metastases to peritoneum [Unknown]
  - Surgery [Unknown]
  - Adenocarcinoma pancreas [Fatal]
  - Pancreatitis [Recovered/Resolved]

NARRATIVE: CASE EVENT DATE: 20090820
